FAERS Safety Report 9013852 (Version 1)
Quarter: 2013Q1

REPORT INFORMATION
  Report Type: Spontaneous
  Country: CA (occurrence: CA)
  Receive Date: 20130115
  Receipt Date: 20130115
  Transmission Date: 20140127
  Serious: Yes (Life-Threatening, Hospitalization)
  Sender: FDA-Public Use
  Company Number: CA-TEVA-380578USA

PATIENT
  Age: 82 Year
  Sex: Male

DRUGS (7)
  1. CARBIDOPA AND LEVODOPA [Suspect]
     Dosage: 5 DOSAGE FORMS DAILY;
  2. AVODART [Concomitant]
     Route: 065
  3. CRESTOR [Concomitant]
     Route: 065
  4. METOPROLOL [Concomitant]
     Route: 065
  5. NORVASC [Concomitant]
     Route: 065
  6. REQUIP [Concomitant]
     Route: 065
  7. SEROQUEL [Concomitant]
     Route: 065

REACTIONS (3)
  - Cerebral haematoma [Unknown]
  - Drug ineffective [Unknown]
  - Fall [Unknown]
